FAERS Safety Report 6347914-3 (Version None)
Quarter: 2009Q3

REPORT INFORMATION
  Report Type: 
  Country: None (occurrence: None)
  Receive Date: 20090910
  Receipt Date: 20090831
  Transmission Date: 20100115
  Serious: Yes (Hospitalization)
  Sender: FDA-Public Use
  Company Number: ES-AVENTIS-200919746GDDC

PATIENT
  Age: 78 Year
  Sex: Male

DRUGS (10)
  1. AMARYL [Suspect]
     Indication: DIABETES MELLITUS
     Route: 048
     Dates: start: 20050101, end: 20090806
  2. METFORMIN HCL [Suspect]
     Indication: DIABETES MELLITUS
     Route: 048
     Dates: start: 20050101, end: 20090806
  3. DOBUPAL [Concomitant]
     Route: 048
  4. IDALPREM [Concomitant]
     Route: 048
  5. PLANTABEN [Concomitant]
     Route: 048
  6. ACFOL [Concomitant]
     Route: 048
  7. DEPRAX                             /00447702/ [Concomitant]
     Route: 048
  8. DUSPATALIN                         /00139402/ [Concomitant]
     Route: 048
  9. SINOGAN                            /00038601/ [Concomitant]
     Route: 048
  10. PARIET [Concomitant]
     Route: 048

REACTIONS (8)
  - DIARRHOEA [None]
  - DIZZINESS [None]
  - GASTROENTERITIS [None]
  - HYPOGLYCAEMIA [None]
  - HYPOPHAGIA [None]
  - MUSCULAR WEAKNESS [None]
  - PYREXIA [None]
  - VOMITING [None]
